FAERS Safety Report 4289006-3 (Version None)
Quarter: 2004Q1

REPORT INFORMATION
  Report Type: 
  Country: None (occurrence: None)
  Receive Date: 20040203
  Receipt Date: 20030721
  Transmission Date: 20041129
  Serious: Yes (Death, Life-Threatening)
  Sender: FDA-Public Use
  Company Number: 03P-163-0221238-00

PATIENT
  Age: 24 Year
  Sex: Male
  Weight: 72.5755 kg

DRUGS (2)
  1. DILAUDID [Suspect]
     Indication: THERMAL BURN
     Dosage: 1 MG, 4 IN 1 D, INTRAVENOUS
     Route: 042
     Dates: start: 20030601, end: 20030601
  2. OXYCOCET [Suspect]
     Indication: THERMAL BURN
     Dosage: 2 TABLET, 1 IN 1 D, PER ORAL
     Route: 048
     Dates: start: 20030601, end: 20030601

REACTIONS (2)
  - DEATH [None]
  - OVERDOSE [None]
